FAERS Safety Report 5635270-5 (Version None)
Quarter: 2008Q1

REPORT INFORMATION
  Report Type: 
  Country: None (occurrence: None)
  Receive Date: 20080222
  Receipt Date: 20080212
  Transmission Date: 20080703
  Serious: Yes (Other)
  Sender: FDA-Public Use
  Company Number: ES-PFIZER INC-2007089428

PATIENT
  Sex: Female
  Weight: 83.8 kg

DRUGS (3)
  1. ZIPRASIDONE (CAPS) [Suspect]
     Indication: PSYCHOTIC DISORDER
     Route: 048
  2. LORAZEPAM [Concomitant]
     Route: 048
  3. BIPERIDEN HYDROCHLORIDE TAB [Concomitant]

REACTIONS (3)
  - CONVULSION [None]
  - EXTRAPYRAMIDAL DISORDER [None]
  - GAZE PALSY [None]
